FAERS Safety Report 10525263 (Version 5)
Quarter: 2015Q2

REPORT INFORMATION
  Report Type: Spontaneous
  Country: US (occurrence: US)
  Receive Date: 20141017
  Receipt Date: 20150527
  Transmission Date: 20150821
  Serious: Yes (Hospitalization, Disabling, Other)
  Sender: FDA-Public Use
  Company Number: US-009507513-1410USA008122

PATIENT
  Sex: Female
  Weight: 54.42 kg

DRUGS (5)
  1. CALCIUM (UNSPECIFIED) [Concomitant]
     Active Substance: CALCIUM
     Dosage: 600 MG, QD
     Dates: start: 1990
  2. FOSAMAX [Suspect]
     Active Substance: ALENDRONATE SODIUM
     Indication: OSTEOPOROSIS
     Dosage: 70 MG, QW
     Route: 048
     Dates: start: 2003, end: 2014
  3. FOSAMAX [Suspect]
     Active Substance: ALENDRONATE SODIUM
     Indication: OSTEOPENIA
  4. ALENDRONATE SODIUM. [Suspect]
     Active Substance: ALENDRONATE SODIUM
     Indication: OSTEOPOROSIS
     Dosage: 70 MG, UNK
     Route: 048
     Dates: start: 20090731, end: 2014
  5. VITAMINS (UNSPECIFIED) [Concomitant]
     Active Substance: VITAMINS
     Dosage: 1 TAB, QD
     Dates: start: 1990

REACTIONS (21)
  - Femur fracture [Unknown]
  - Pain in extremity [Unknown]
  - Haemoglobin decreased [Unknown]
  - Hyperlipidaemia [Unknown]
  - Arthralgia [Unknown]
  - Arthroscopy [Unknown]
  - Fall [Unknown]
  - Fall [Unknown]
  - Gastrooesophageal reflux disease [Unknown]
  - Scoliosis [Unknown]
  - Nausea [Unknown]
  - Depression [Unknown]
  - Lichen planus [Unknown]
  - Depression [Unknown]
  - Hypertension [Unknown]
  - Femur fracture [Recovering/Resolving]
  - Muscular weakness [Unknown]
  - Anaemia postoperative [Unknown]
  - Back pain [Unknown]
  - Arthropathy [Unknown]
  - Retinal detachment [Unknown]

NARRATIVE: CASE EVENT DATE: 2003
